FAERS Safety Report 6447419-5 (Version None)
Quarter: 2009Q4

REPORT INFORMATION
  Report Type: 
  Country: None (occurrence: None)
  Receive Date: 20091119
  Receipt Date: 20091106
  Transmission Date: 20100525
  Serious: Yes (Hospitalization)
  Sender: FDA-Public Use
  Company Number: DE-MYLANLABS-2009S1015497

PATIENT
  Age: 78 Year
  Sex: Female
  Weight: 59 kg

DRUGS (13)
  1. CLARITHROMYCIN [Suspect]
     Indication: HELICOBACTER INFECTION
     Route: 048
     Dates: start: 20090506, end: 20090511
  2. ROCEPHIN [Interacting]
     Indication: PNEUMONIA
     Route: 042
     Dates: start: 20090502, end: 20090508
  3. AMOXYPEN [Interacting]
     Indication: HELICOBACTER INFECTION
     Route: 048
     Dates: start: 20090506, end: 20090511
  4. ORELOX [Interacting]
     Indication: PNEUMONIA
     Route: 048
     Dates: start: 20090509, end: 20090511
  5. PANTOZOL [Interacting]
     Indication: HELICOBACTER INFECTION
     Route: 048
     Dates: start: 20090430
  6. THEOPHYLLINE [Concomitant]
     Indication: CHRONIC OBSTRUCTIVE PULMONARY DISEASE
     Route: 048
     Dates: start: 20080401
  7. DIGITOXIN INJ [Concomitant]
     Indication: TACHYARRHYTHMIA
     Route: 048
     Dates: start: 20080401
  8. BISOPROLOL [Concomitant]
     Indication: HYPERTENSION
     Route: 048
     Dates: start: 20080401
  9. ALDACTONE [Concomitant]
     Indication: CARDIAC FAILURE CHRONIC
     Route: 048
     Dates: start: 20080401
  10. SIMVASTATIN [Concomitant]
     Indication: HYPERLIPIDAEMIA
     Route: 048
     Dates: start: 20080401
  11. FALITHROM [Concomitant]
     Indication: AORTIC VALVE REPLACEMENT
     Dosage: NACH WERT, ~1.5MG/TAG
     Route: 048
     Dates: start: 20050801
  12. TORSEMIDE [Concomitant]
     Indication: HYPERTENSION
     Route: 048
     Dates: start: 20090501
  13. QUINAPRIL [Concomitant]
     Indication: HYPERTENSION
     Route: 048
     Dates: start: 20090401

REACTIONS (2)
  - CLOSTRIDIUM DIFFICILE COLITIS [None]
  - DRUG INTERACTION [None]
